FAERS Safety Report 8573273-1 (Version None)
Quarter: 2012Q3

REPORT INFORMATION
  Report Type: 
  Country: None (occurrence: None)
  Receive Date: 20120806
  Receipt Date: 20120730
  Transmission Date: 20120928
  Serious: Yes (Other)
  Sender: FDA-Public Use
  Company Number: GB-PFIZER INC-2012172020

PATIENT
  Age: 57 Year
  Sex: Female

DRUGS (2)
  1. VARENICLINE [Suspect]
     Indication: SMOKING CESSATION THERAPY
     Dosage: STARTER PACK
     Dates: start: 20120522, end: 20120101
  2. VARENICLINE [Suspect]
     Dosage: FOLLOW ON PACK
     Dates: start: 20120606, end: 20120607

REACTIONS (14)
  - SKIN DISCOLOURATION [None]
  - CHEST PAIN [None]
  - ABNORMAL DREAMS [None]
  - RASH GENERALISED [None]
  - RASH PRURITIC [None]
  - DYSPNOEA [None]
  - DEPRESSED MOOD [None]
  - MALAISE [None]
  - TREMOR [None]
  - PANIC ATTACK [None]
  - SKIN EXFOLIATION [None]
  - ASTHENIA [None]
  - ONYCHOLYSIS [None]
  - PAIN OF SKIN [None]
